FAERS Safety Report 5810099-3 (Version None)
Quarter: 2008Q3

REPORT INFORMATION
  Report Type: 
  Country: None (occurrence: None)
  Receive Date: 20080715
  Receipt Date: 20080714
  Transmission Date: 20090109
  Serious: Yes (Death)
  Sender: FDA-Public Use
  Company Number: US-BRISTOL-MYERS SQUIBB COMPANY-14262372

PATIENT

DRUGS (1)
  1. ABILIFY [Suspect]

REACTIONS (1)
  - ROAD TRAFFIC ACCIDENT [None]
